FAERS Safety Report 15023151 (Version 1)
Quarter: 2018Q2

REPORT INFORMATION
  Report Type: Spontaneous
  Country: DE (occurrence: DE)
  Receive Date: 20180618
  Receipt Date: 20180618
  Transmission Date: 20180711
  Serious: Yes (Hospitalization)
  Sender: FDA-Public Use
  Company Number: DE-TEVA-2018-DE-907598

PATIENT
  Age: 70 Year
  Sex: Female

DRUGS (7)
  1. LASIX [Suspect]
     Active Substance: FUROSEMIDE
     Dosage: 40 MG, NK
     Route: 065
  2. MARCUMAR [Suspect]
     Active Substance: PHENPROCOUMON
     Dosage: NK
     Route: 065
  3. ZEBETA [Suspect]
     Active Substance: BISOPROLOL FUMARATE
     Dosage: NK
     Route: 065
  4. METOPROLOL. [Suspect]
     Active Substance: METOPROLOL
     Dosage: NK
     Route: 065
  5. LOSARTAN. [Suspect]
     Active Substance: LOSARTAN
     Dosage: 100|25 MG, NK
     Route: 065
  6. NOVAMIN [Concomitant]
     Dosage: NK
     Route: 065
  7. DICLOFENAC [Concomitant]
     Active Substance: DICLOFENAC
     Dosage: NK
     Route: 065

REACTIONS (4)
  - Wound [Unknown]
  - Syncope [Unknown]
  - Drug prescribing error [Unknown]
  - Fall [Unknown]
